FAERS Safety Report 5329338-0 (Version None)
Quarter: 2007Q2

REPORT INFORMATION
  Report Type: 
  Country: None (occurrence: None)
  Receive Date: 20070518
  Receipt Date: 20070508
  Transmission Date: 20071010
  Serious: Yes (Other)
  Sender: FDA-Public Use
  Company Number: ZA-PFIZER INC-2007038298

PATIENT
  Sex: Male

DRUGS (3)
  1. LIPITOR [Suspect]
     Route: 048
  2. ELANTAN ^KNOLL^ [Concomitant]
     Route: 048
  3. ACE INHIBITORS AND DIURETICS [Concomitant]
     Route: 048

REACTIONS (1)
  - COLON CANCER [None]
